FAERS Safety Report 20420762 (Version 3)
Quarter: 2022Q3

REPORT INFORMATION
  Report Type: Spontaneous
  Country: JP (occurrence: JP)
  Receive Date: 20220203
  Receipt Date: 20220909
  Transmission Date: 20221027
  Serious: Yes (Other)
  Sender: FDA-Public Use
  Company Number: JP-EXELIXIS-CABO-22048671

PATIENT
  Age: 71 Year
  Sex: Male

DRUGS (1)
  1. CABOMETYX [Suspect]
     Active Substance: CABOZANTINIB S-MALATE
     Indication: Metastatic renal cell carcinoma
     Dosage: 40 MG
     Route: 048

REACTIONS (4)
  - Hyperthyroidism [Unknown]
  - Hypothyroidism [Unknown]
  - Dysgeusia [Unknown]
  - Decreased appetite [Unknown]
